FAERS Safety Report 15769171 (Version 1)
Quarter: 2018Q4

REPORT INFORMATION
  Report Type: Spontaneous
  Country: FR (occurrence: FR)
  Receive Date: 20181228
  Receipt Date: 20181228
  Transmission Date: 20190205
  Serious: Yes (Hospitalization)
  Sender: FDA-Public Use
  Company Number: FR-TEVA-2018-FR-992506

PATIENT
  Age: 84 Year
  Sex: Male
  Weight: 62.3 kg

DRUGS (11)
  1. SPIRONOLACTONE. [Concomitant]
     Active Substance: SPIRONOLACTONE
  2. KARDEGIC [Suspect]
     Active Substance: ASPIRIN DL-LYSINE
     Indication: CEREBROVASCULAR ACCIDENT PROPHYLAXIS
     Dosage: 1 DOSAGE FORMS DAILY;
     Route: 048
     Dates: start: 2014
  3. OMEXEL L.P. 0,4 MG, COMPRIM? PELLICUL? ? LIB?RATION PROLONG?E [Concomitant]
     Route: 065
  4. CANDESARTAN CILEXETIL. [Concomitant]
     Active Substance: CANDESARTAN CILEXETIL
  5. LASILIX 40 MG, COMPRIM? S?CABLE [Concomitant]
     Active Substance: FUROSEMIDE
  6. ESCITALOPRAM [Suspect]
     Active Substance: ESCITALOPRAM OXALATE
     Indication: DEPRESSION
     Dosage: 10 DOSAGE FORMS DAILY;
     Route: 048
     Dates: start: 20180405, end: 20181120
  7. TENORDATE [Concomitant]
     Active Substance: ATENOLOL\NIFEDIPINE
  8. SERESTA 10 MG, COMPRIM? [Concomitant]
     Active Substance: OXAZEPAM
  9. AVODART [Concomitant]
     Active Substance: DUTASTERIDE
  10. SEEBRI BREEZHALER [Concomitant]
     Active Substance: GLYCOPYRROLATE
  11. IMOVANE [Concomitant]
     Active Substance: ZOPICLONE

REACTIONS (1)
  - Cerebral haemorrhage [Not Recovered/Not Resolved]

NARRATIVE: CASE EVENT DATE: 20181116
